FAERS Safety Report 9163375 (Version 1)
Quarter: 2013Q1

REPORT INFORMATION
  Report Type: Spontaneous
  Country: US (occurrence: None)
  Receive Date: 20130226
  Receipt Date: 20130226
  Transmission Date: 20140127
  Serious: Yes (Hospitalization, Other)
  Sender: FDA-Public Use
  Company Number: 2012-19983

PATIENT
  Age: 54 Year
  Sex: Female

DRUGS (3)
  1. MORPHINE SULFATE (UNKNOWN) (MORPHINE SULFATE) UNK, UNKUNK [Suspect]
     Indication: BACK PAIN
     Dosage: PEAK DOSE 15.8I MG/DAY INTRATHECAL
     Route: 037
  2. BUPIVICAINE (BUPIVACINE HYDROCHLORIDE) [Concomitant]
  3. CLONIDINE (CLONIDINE) [Concomitant]

REACTIONS (4)
  - Urinary incontinence [None]
  - Muscular weakness [None]
  - Hypoaesthesia [None]
  - Injection site granuloma [None]
